FAERS Safety Report 8211022-7 (Version None)
Quarter: 2012Q1

REPORT INFORMATION
  Report Type: 
  Country: None (occurrence: None)
  Receive Date: 20120315
  Receipt Date: 20120305
  Transmission Date: 20120608
  Serious: Yes (Other)
  Sender: FDA-Public Use
  Company Number: PHHY2012US021629

PATIENT

DRUGS (1)
  1. ZOMETA [Suspect]
     Dosage: 4 MG PER 5 ML
     Route: 065

REACTIONS (1)
  - PNEUMONIA [None]
